FAERS Safety Report 11595767 (Version 1)
Quarter: 2015Q4

REPORT INFORMATION
  Report Type: Spontaneous
  Country: US (occurrence: None)
  Receive Date: 20151005
  Receipt Date: 20151005
  Transmission Date: 20160304
  Serious: Yes (Hospitalization)
  Sender: FDA-Public Use
  Company Number: None

PATIENT
  Age: 61 Year
  Sex: Female
  Weight: 105 kg

DRUGS (8)
  1. METHADONE [Concomitant]
     Active Substance: METHADONE HYDROCHLORIDE
  2. LASIX [Concomitant]
     Active Substance: FUROSEMIDE
  3. KCL [Concomitant]
     Active Substance: POTASSIUM CHLORIDE
  4. ALLOPURINOL. [Concomitant]
     Active Substance: ALLOPURINOL
  5. TUDORZA PRESSAIR [Concomitant]
     Active Substance: ACLIDINIUM BROMIDE
  6. METOPROLOL [Concomitant]
     Active Substance: METOPROLOL
  7. METOLAZONE. [Concomitant]
     Active Substance: METOLAZONE
  8. RIVAROXABAN 20 MG JANSSEN [Suspect]
     Active Substance: RIVAROXABAN
     Indication: ATRIAL FIBRILLATION
     Route: 048
     Dates: start: 20150623, end: 20150930

REACTIONS (5)
  - Faeces discoloured [None]
  - Haemoglobin decreased [None]
  - Asthenia [None]
  - Hypotension [None]
  - International normalised ratio increased [None]

NARRATIVE: CASE EVENT DATE: 20150930
